FAERS Safety Report 4814071-1 (Version None)
Quarter: 2005Q4

REPORT INFORMATION
  Report Type: 
  Country: None (occurrence: None)
  Receive Date: 20051028
  Receipt Date: 20050826
  Transmission Date: 20060501
  Serious: Yes (Other)
  Sender: FDA-Public Use
  Company Number: US-GLAXOSMITHKLINE-A0571984A

PATIENT
  Age: 65 Year
  Sex: Male

DRUGS (3)
  1. SEREVENT [Suspect]
     Route: 055
  2. HYDROCHLOROTHIAZIDE [Concomitant]
  3. ALBUTEROL [Concomitant]

REACTIONS (3)
  - DRUG INEFFECTIVE [None]
  - DYSPNOEA EXACERBATED [None]
  - PHARMACEUTICAL PRODUCT COMPLAINT [None]
